FAERS Safety Report 5565795-2 (Version None)
Quarter: 2007Q4

REPORT INFORMATION
  Report Type: 
  Country: None (occurrence: None)
  Receive Date: 20071213
  Receipt Date: 20071128
  Transmission Date: 20080405
  Serious: Yes (Other)
  Sender: FDA-Public Use
  Company Number: 021123

PATIENT
  Age: 16 Year
  Sex: Male
  Weight: 83.9 kg

DRUGS (2)
  1. CLARAVIS [Suspect]
     Indication: ACNE
     Dosage: 40 MG, BID; ORAL, 40 MG, QD; ORAL
     Route: 048
     Dates: start: 20070604
  2. CLARAVIS [Suspect]
     Indication: ACNE
     Dosage: 40 MG, BID; ORAL, 40 MG, QD; ORAL
     Route: 048
     Dates: start: 20071025

REACTIONS (1)
  - INJURY [None]
